FAERS Safety Report 7917377-2 (Version None)
Quarter: 2011Q4

REPORT INFORMATION
  Report Type: 
  Country: None (occurrence: None)
  Receive Date: 20111116
  Receipt Date: 20111108
  Transmission Date: 20120403
  Serious: Yes (Hospitalization, Other)
  Sender: FDA-Public Use
  Company Number: JP-SANOFI-AVENTIS-2011SA070981

PATIENT
  Age: 67 Year
  Sex: Male

DRUGS (12)
  1. PLAVIX [Suspect]
     Indication: CEREBRAL INFARCTION
     Route: 065
     Dates: start: 20100528, end: 20110831
  2. URINORM [Suspect]
     Route: 065
  3. TALION [Suspect]
     Route: 065
  4. MADOPAR [Suspect]
     Route: 065
  5. PLAVIX [Suspect]
     Route: 065
     Dates: start: 20110901, end: 20111019
  6. AMLODIPINE [Suspect]
     Route: 065
  7. SITAGLIPTIN PHOSPHATE [Suspect]
     Route: 065
  8. ZOLPIDEM [Suspect]
     Route: 065
  9. DIFLUPREDNATE [Suspect]
     Route: 065
  10. ITAVASTATIN [Suspect]
     Route: 065
  11. HYDROCHLOROTHIAZIDE/TELMISARTAN [Suspect]
     Route: 065
  12. ARICEPT [Suspect]
     Route: 065

REACTIONS (3)
  - BLOOD CREATINE PHOSPHOKINASE INCREASED [None]
  - NEPHROPATHY [None]
  - INFECTION [None]
